FAERS Safety Report 21765815 (Version 1)
Quarter: 2022Q4

REPORT INFORMATION
  Report Type: Spontaneous
  Country: US (occurrence: None)
  Receive Date: 20221221
  Receipt Date: 20221221
  Transmission Date: 20230113
  Serious: Yes (Other)
  Sender: FDA-Public Use
  Company Number: None

PATIENT
  Sex: Female

DRUGS (1)
  1. ENBREL [Suspect]
     Active Substance: ETANERCEPT
     Dosage: 50MG OTHER SUBCUTANEOUS
     Route: 058

REACTIONS (6)
  - Injection site rash [None]
  - Injection site erythema [None]
  - Rubber sensitivity [None]
  - Dyspnoea [None]
  - Pain [None]
  - Pain [None]
